FAERS Safety Report 25219245 (Version 1)
Quarter: 2025Q2

REPORT INFORMATION
  Report Type: Spontaneous
  Country: ES (occurrence: ES)
  Receive Date: 20250421
  Receipt Date: 20250421
  Transmission Date: 20250716
  Serious: Yes (Other)
  Sender: TEVA
  Company Number: None

PATIENT
  Age: 71 Year
  Sex: Male

DRUGS (3)
  1. METAMIZOLE [Interacting]
     Active Substance: METAMIZOLE
     Indication: Back pain
     Dosage: METAMIZOLE (111A)
     Route: 048
     Dates: start: 20250211, end: 20250215
  2. NAPROXEN [Interacting]
     Active Substance: NAPROXEN
     Indication: Back pain
     Dosage: NAPROXEN (2002A)
     Route: 048
     Dates: start: 20250211, end: 20250215
  3. WARFARIN SODIUM [Interacting]
     Active Substance: WARFARIN SODIUM
     Indication: Cardiac valve prosthesis user
     Dosage: 40 TABLETS
     Route: 048
     Dates: start: 202306

REACTIONS (1)
  - Haematoma muscle [Recovering/Resolving]

NARRATIVE: CASE EVENT DATE: 20250215
